FAERS Safety Report 15865222 (Version 2)
Quarter: 2019Q1

REPORT INFORMATION
  Report Type: Spontaneous
  Country: BR (occurrence: BR)
  Receive Date: 20190124
  Receipt Date: 20190125
  Transmission Date: 20190417
  Serious: Yes (Other)
  Sender: FDA-Public Use
  Company Number: BR-TOLMAR, INC.-TOLG20190021

PATIENT
  Age: 7 Year
  Sex: Female
  Weight: 34 kg

DRUGS (3)
  1. SALBUTAMOL [Suspect]
     Active Substance: ALBUTEROL
     Indication: BRONCHOSPASM
     Dosage: 700 MCG
     Dates: start: 20170830
  2. RANITIDINE HYDROCHLORIDE. [Suspect]
     Active Substance: RANITIDINE HYDROCHLORIDE
     Indication: PROPHYLAXIS AGAINST GASTROINTESTINAL ULCER
     Dosage: 4.0 MG/KG PER DAY
     Route: 042
     Dates: start: 20170831, end: 20170831
  3. METHYLPREDNISOLONE. [Suspect]
     Active Substance: METHYLPREDNISOLONE
     Indication: BRONCHOSPASM
     Dosage: 2.0 MG/KG PER DAY
     Route: 065
     Dates: start: 20170830

REACTIONS (9)
  - Confusional state [Recovered/Resolved]
  - Disturbance in attention [Recovered/Resolved]
  - Psychomotor hyperactivity [Recovered/Resolved]
  - Anticholinergic syndrome [Recovered/Resolved]
  - Abnormal behaviour [Recovered/Resolved]
  - Delirium [Recovered/Resolved]
  - Aggression [Recovered/Resolved]
  - Hallucination [Recovered/Resolved]
  - Thinking abnormal [Recovered/Resolved]

NARRATIVE: CASE EVENT DATE: 20170831
